FAERS Safety Report 4281985-3 (Version None)
Quarter: 2004Q1

REPORT INFORMATION
  Report Type: 
  Country: None (occurrence: None)
  Receive Date: 20040130
  Receipt Date: 20040119
  Transmission Date: 20041129
  Serious: Yes (Other)
  Sender: FDA-Public Use
  Company Number: PHBS2004CA01117

PATIENT
  Age: 27 Year
  Sex: Male

DRUGS (7)
  1. LIORESAL [Suspect]
     Indication: CEREBRAL PALSY
     Dosage: 1 TABLET/DAY
     Route: 048
     Dates: start: 20031127
  2. LIORESAL [Suspect]
     Dosage: 1 TABLET, BID
     Route: 048
  3. LIORESAL [Suspect]
     Dosage: 1 TABLET, TID
     Route: 048
  4. LIORESAL [Suspect]
     Dosage: 2 TABLETS, BID
     Route: 048
  5. LIORESAL [Suspect]
     Dosage: 2 TABLETS, TID
     Route: 048
  6. LIORESAL [Suspect]
     Dosage: 1 TABLET/DAY
     Route: 048
  7. DOMPERIDONE [Concomitant]
     Indication: DYSPHAGIA
     Route: 065

REACTIONS (16)
  - AGITATION [None]
  - ANGER [None]
  - ANTISOCIAL BEHAVIOUR [None]
  - CONSTIPATION [None]
  - DEPRESSION [None]
  - DRY MOUTH [None]
  - DYSPHAGIA [None]
  - EYE DISORDER [None]
  - HALLUCINATION [None]
  - HYPERHIDROSIS [None]
  - INSOMNIA [None]
  - LETHARGY [None]
  - MOOD SWINGS [None]
  - PARANOIA [None]
  - THYROID FUNCTION TEST ABNORMAL [None]
  - URINE OUTPUT DECREASED [None]
